FAERS Safety Report 6818507-6 (Version None)
Quarter: 2010Q3

REPORT INFORMATION
  Report Type: 
  Country: None (occurrence: None)
  Receive Date: 20100706
  Receipt Date: 20080827
  Transmission Date: 20110219
  Serious: No
  Sender: FDA-Public Use
  Company Number: US-PFIZER INC-2008072478

PATIENT
  Sex: Female

DRUGS (1)
  1. AZITHROMYCIN [Suspect]
     Indication: INFECTION
     Dates: start: 20080827

REACTIONS (3)
  - LIP SWELLING [None]
  - OROPHARYNGEAL DISCOMFORT [None]
  - WHEEZING [None]
